FAERS Safety Report 13996712 (Version 1)
Quarter: 2017Q3

REPORT INFORMATION
  Report Type: Spontaneous
  Country: US (occurrence: US)
  Receive Date: 20170921
  Receipt Date: 20170921
  Transmission Date: 20171128
  Serious: No
  Sender: FDA-Public Use
  Company Number: US-ALLERGAN-1734184US

PATIENT
  Sex: Female
  Weight: 46.71 kg

DRUGS (7)
  1. GLYCOPYRROLATE                     /00196201/ [Concomitant]
     Active Substance: GLYCOPYRRONIUM
     Indication: PRODUCT USED FOR UNKNOWN INDICATION
     Dosage: 1 MG, QD
     Route: 048
  2. VIBERZI [Suspect]
     Active Substance: ELUXADOLINE
     Indication: COLITIS ULCERATIVE
     Dosage: 75 MG, BID
     Route: 048
     Dates: start: 20170328
  3. VIBERZI [Suspect]
     Active Substance: ELUXADOLINE
     Dosage: 75 MG, QD
     Route: 048
     Dates: start: 20170328
  4. LOMOTIL [Concomitant]
     Active Substance: ATROPINE SULFATE\DIPHENOXYLATE HYDROCHLORIDE
     Indication: DIARRHOEA
     Dosage: UNK, PRN
     Route: 048
  5. VIBERZI [Suspect]
     Active Substance: ELUXADOLINE
     Dosage: 75 MG, UNK
     Route: 048
     Dates: start: 20170328, end: 20170702
  6. LIALDA [Concomitant]
     Active Substance: MESALAMINE
     Indication: COLITIS ULCERATIVE
     Dosage: 1.2 G, QD
     Route: 048
  7. LEVOTHYROXINE. [Concomitant]
     Active Substance: LEVOTHYROXINE
     Indication: THYROID DISORDER
     Dosage: UNK
     Route: 048

REACTIONS (6)
  - Pain [Recovered/Resolved]
  - Insomnia [Recovered/Resolved]
  - Abdominal pain [Recovered/Resolved]
  - Off label use [Unknown]
  - Inappropriate schedule of drug administration [Unknown]
  - Nausea [Recovered/Resolved]
